FAERS Safety Report 10012100 (Version 4)
Quarter: 2014Q2

REPORT INFORMATION
  Report Type: Spontaneous
  Country: JP (occurrence: JP)
  Receive Date: 20140314
  Receipt Date: 20140501
  Transmission Date: 20141212
  Serious: Yes (Other)
  Sender: FDA-Public Use
  Company Number: JP-OTSUKA-JP-2014-12246

PATIENT
  Age: 68 Year
  Sex: Male

DRUGS (2)
  1. SAMSCA [Suspect]
     Indication: OEDEMA DUE TO HEPATIC DISEASE
     Dosage: 3.75 MG MILLIGRAM(S), DAILY DOSE
     Route: 048
     Dates: start: 20140226
  2. SAMSCA [Suspect]
     Indication: ASCITES
     Dosage: 7.5 MG MILLIGRAM(S), DAILY DOSE
     Route: 048
     Dates: start: 20140228

REACTIONS (3)
  - Ammonia increased [Recovered/Resolved]
  - Hepatic encephalopathy [Unknown]
  - Essential tremor [Recovered/Resolved]
